FAERS Safety Report 25373634 (Version 1)
Quarter: 2025Q2

REPORT INFORMATION
  Report Type: Spontaneous
  Country: US (occurrence: None)
  Receive Date: 20250528
  Receipt Date: 20250528
  Transmission Date: 20250716
  Serious: Yes (Disabling)
  Sender: FDA-CTU
  Company Number: None

PATIENT
  Age: 67 Year
  Sex: Female
  Weight: 76.5 kg

DRUGS (7)
  1. ATORVASTATIN [Suspect]
     Active Substance: ATORVASTATIN
     Indication: Hyperlipidaemia
  2. CITALOPRAM [Concomitant]
     Active Substance: CITALOPRAM
  3. MIRENA [Concomitant]
     Active Substance: LEVONORGESTREL
  4. ESTRADIOL [Concomitant]
     Active Substance: ESTRADIOL
  5. Fluticione NS [Concomitant]
  6. Salmeterol/fluticisone DP [Concomitant]
  7. LOSARTAN [Concomitant]
     Active Substance: LOSARTAN

REACTIONS (1)
  - Necrotising myositis [None]

NARRATIVE: CASE EVENT DATE: 20190501
